FAERS Safety Report 7491332-1 (Version None)
Quarter: 2011Q2

REPORT INFORMATION
  Report Type: 
  Country: None (occurrence: None)
  Receive Date: 20110519
  Receipt Date: 20110510
  Transmission Date: 20111010
  Serious: Yes (Hospitalization)
  Sender: FDA-Public Use
  Company Number: ES-NAPPMUNDI-GBR-2011-0008206

PATIENT
  Age: 76 Year
  Sex: Female

DRUGS (7)
  1. ACETAMINOPHEN [Suspect]
  2. PREGABALIN [Suspect]
  3. TRAMADOL HCL [Suspect]
     Indication: PAIN
  4. MORPHINE SULFATE [Suspect]
     Indication: PAIN
     Route: 065
  5. ROPIVACAINE HYDROCHLORIDE [Concomitant]
     Indication: PAIN
     Route: 008
  6. LIDOCAINE W/PRILOCAINE [Concomitant]
     Indication: PAIN
  7. FENTANYL [Concomitant]
     Indication: PAIN
     Route: 008

REACTIONS (3)
  - INADEQUATE ANALGESIA [None]
  - RENAL FAILURE ACUTE [None]
  - TOXICITY TO VARIOUS AGENTS [None]
